FAERS Safety Report 12598741 (Version 1)
Quarter: 2016Q3

REPORT INFORMATION
  Report Type: Spontaneous
  Country: US (occurrence: US)
  Receive Date: 20160726
  Receipt Date: 20160726
  Transmission Date: 20161109
  Serious: No
  Sender: FDA-Public Use
  Company Number: US-IMPAX LABORATORIES, INC-2015AMD00169

PATIENT
  Sex: Male
  Weight: 88.44 kg

DRUGS (5)
  1. ADRENACLICK [Suspect]
     Active Substance: EPINEPHRINE
     Dosage: UNK
  2. ADRENACLICK [Suspect]
     Active Substance: EPINEPHRINE
     Indication: FOOD ALLERGY
     Dosage: 0.30 MG, ONCE
     Route: 051
     Dates: start: 2015, end: 2015
  3. TRIAMTERENE. [Concomitant]
     Active Substance: TRIAMTERENE
  4. VERAPAMIL [Concomitant]
     Active Substance: VERAPAMIL HYDROCHLORIDE
  5. ADRENACLICK [Suspect]
     Active Substance: EPINEPHRINE
     Indication: FOOD ALLERGY
     Dosage: 0.30 MG, ONCE
     Route: 051
     Dates: start: 2015, end: 2015

REACTIONS (1)
  - Drug ineffective [Recovered/Resolved]

NARRATIVE: CASE EVENT DATE: 2015
